FAERS Safety Report 6367274-1 (Version None)
Quarter: 2009Q3

REPORT INFORMATION
  Report Type: 
  Country: None (occurrence: None)
  Receive Date: 20090921
  Receipt Date: 20090910
  Transmission Date: 20100115
  Serious: No
  Sender: FDA-Public Use
  Company Number: US-B.I. PHARMACEUTICALS,INC./RIDGEFIELD-2005-BP-04470BP

PATIENT
  Age: 69 Year
  Sex: Male

DRUGS (3)
  1. FLOMAX [Suspect]
     Indication: BENIGN PROSTATIC HYPERPLASIA
     Dosage: 0.4 MG
     Route: 048
     Dates: start: 20050315
  2. FLOMAX [Suspect]
     Indication: PROSTATE CANCER
  3. LUPRON DEPOT [Concomitant]
     Indication: PROSTATE CANCER

REACTIONS (3)
  - NAUSEA [None]
  - SINUS CONGESTION [None]
  - THROAT IRRITATION [None]
